FAERS Safety Report 8212998-4 (Version None)
Quarter: 2012Q1

REPORT INFORMATION
  Report Type: 
  Country: None (occurrence: None)
  Receive Date: 20120315
  Receipt Date: 20120302
  Transmission Date: 20120608
  Serious: No
  Sender: FDA-Public Use
  Company Number: US-B.I. PHARMACEUTICALS,INC./RIDGEFIELD-2012-BP-04084BP

PATIENT
  Sex: Female

DRUGS (9)
  1. MULTI-VITAMINS [Concomitant]
     Indication: SUPPLEMENTATION THERAPY
     Route: 048
  2. FISH OIL [Concomitant]
     Indication: SUPPLEMENTATION THERAPY
     Dosage: 360 MG
     Route: 048
  3. ASPIRIN [Concomitant]
     Indication: ARRHYTHMIA
     Dosage: 81 MG
     Route: 048
  4. ASCORBIC ACID [Concomitant]
     Indication: SUPPLEMENTATION THERAPY
     Dosage: 1000 MG
     Route: 048
  5. CALCIUM CARBONATE [Concomitant]
     Indication: SUPPLEMENTATION THERAPY
     Dosage: 600 MG
     Route: 048
  6. MICARDIS [Suspect]
     Indication: HYPERTENSION
     Dosage: 40 MG
     Route: 048
     Dates: start: 20080101
  7. OMEPRAZOLE [Concomitant]
     Indication: GASTRIC HAEMORRHAGE
     Dosage: 20 MG
     Route: 048
  8. EXTRA STRENGTH TYLENOL [Concomitant]
     Indication: MYALGIA
     Route: 048
  9. VITAMIN D [Concomitant]
     Indication: SUPPLEMENTATION THERAPY
     Dosage: 1000 MG
     Route: 048

REACTIONS (1)
  - NECK PAIN [None]
